FAERS Safety Report 5005003-4 (Version None)
Quarter: 2006Q1

REPORT INFORMATION
  Report Type: 
  Country: None (occurrence: None)
  Receive Date: 20060327
  Receipt Date: 20060111
  Transmission Date: 20060701
  Serious: Yes (Death, Hospitalization, Disabling)
  Sender: FDA-Public Use
  Company Number: CIP05002303

PATIENT
  Age: 52 Year
  Sex: Male
  Weight: 86.2 kg

DRUGS (9)
  1. DANTRIUM [Suspect]
     Indication: NEUROLEPTIC MALIGNANT SYNDROME
     Dosage: 80 MG DAILY, IV NOS
     Route: 042
     Dates: start: 20050923, end: 20050924
  2. VALPROIC ACID [Suspect]
     Indication: AFFECTIVE DISORDER
     Dosage: ORAL
     Route: 048
  3. SINGULAIR [Concomitant]
  4. PREVACID [Concomitant]
  5. METOPROLOL SUCCINATE [Concomitant]
  6. GEODON [Concomitant]
  7. DIOVAN [Concomitant]
  8. COMBIVENT [Concomitant]
  9. CARBIDOPA W/LEVODOPA (CARBIDOPA, LEVODOPA) [Concomitant]

REACTIONS (1)
  - HEPATOTOXICITY [None]
